FAERS Safety Report 9433676 (Version 1)
Quarter: 2013Q3

REPORT INFORMATION
  Report Type: Spontaneous
  Country: AU (occurrence: DE)
  Receive Date: 20130731
  Receipt Date: 20130731
  Transmission Date: 20140515
  Serious: Yes (Other)
  Sender: FDA-Public Use
  Company Number: AU-BAXTER-2013BAX030063

PATIENT
  Sex: 0

DRUGS (1)
  1. CEPROTIN 500 I.E. [Suspect]
     Indication: PURPURA FULMINANS
     Route: 065

REACTIONS (3)
  - Epistaxis [Recovered/Resolved]
  - Pharyngeal haemorrhage [Recovered/Resolved]
  - Pleural effusion [Unknown]
